APPROVED DRUG PRODUCT: SPIRONOLACTONE
Active Ingredient: SPIRONOLACTONE
Strength: 100MG
Dosage Form/Route: TABLET;ORAL
Application: A040353 | Product #002
Applicant: ACTAVIS ELIZABETH LLC
Approved: Jul 29, 1999 | RLD: No | RS: No | Type: DISCN